FAERS Safety Report 9547694 (Version 1)
Quarter: 2013Q3

REPORT INFORMATION
  Report Type: Spontaneous
  Country: DE (occurrence: None)
  Receive Date: 20130920
  Receipt Date: 20130920
  Transmission Date: 20140515
  Serious: Yes (Other)
  Sender: FDA-Public Use
  Company Number: SYM-2013-10648

PATIENT
  Age: 32 Year
  Sex: Female

DRUGS (6)
  1. ELONTRIL [Suspect]
     Indication: DEPRESSION
     Route: 048
     Dates: start: 20130618, end: 20130618
  2. ELONTRIL [Suspect]
     Indication: SOCIAL PHOBIA
     Route: 048
     Dates: start: 20130618, end: 20130618
  3. ELONTRIL [Suspect]
     Route: 048
     Dates: start: 20130618, end: 20130618
  4. CYMBALTA [Suspect]
     Dosage: BID, UNKNOWN, UNKNOWN
  5. RISPERIDONE [Suspect]
     Indication: PRODUCT USED FOR UNKNOWN INDICATION
  6. AMITRIPTYLIN [Suspect]
     Indication: PRODUCT USED FOR UNKNOWN INDICATION

REACTIONS (3)
  - Urinary retention [None]
  - Local swelling [None]
  - Thrombosis [None]
